FAERS Safety Report 16468280 (Version 1)
Quarter: 2019Q2

REPORT INFORMATION
  Report Type: Spontaneous
  Country: US (occurrence: US)
  Receive Date: 20190513
  Receipt Date: 20190513
  Transmission Date: 20190711
  Serious: No
  Sender: FDA-Public Use
  Company Number: None

PATIENT
  Age: 78 Year
  Sex: Female

DRUGS (13)
  1. VIT D [Concomitant]
     Active Substance: VITAMIN D NOS
  2. ZOLOFT [Concomitant]
     Active Substance: SERTRALINE HYDROCHLORIDE
  3. LOSARTAN. [Concomitant]
     Active Substance: LOSARTAN
  4. MAG OXIDE [Concomitant]
     Active Substance: MAGNESIUM OXIDE
  5. OMEPRAZOLE. [Concomitant]
     Active Substance: OMEPRAZOLE
  6. PROBIOTIC [Concomitant]
     Active Substance: PROBIOTICS NOS
  7. OCALIVA [Suspect]
     Active Substance: OBETICHOLIC ACID
     Indication: PRIMARY BILIARY CHOLANGITIS
     Route: 048
     Dates: start: 201905
  8. EXCEDRIN [Concomitant]
     Active Substance: ACETAMINOPHEN\ASPIRIN\CAFFEINE
  9. URSODIOL. [Concomitant]
     Active Substance: URSODIOL
  10. THERAGRAM-M [Concomitant]
  11. ZOLPIDEM [Concomitant]
     Active Substance: ZOLPIDEM\ZOLPIDEM TARTRATE
  12. VITAMIN C [Concomitant]
     Active Substance: ASCORBIC ACID
  13. MILK THISTLE [Concomitant]
     Active Substance: DIETARY SUPPLEMENT\HERBALS\MILK THISTLE

REACTIONS (4)
  - Fatigue [None]
  - Palpitations [None]
  - Feeling hot [None]
  - Dizziness [None]

NARRATIVE: CASE EVENT DATE: 201905
